FAERS Safety Report 25322243 (Version 2)
Quarter: 2025Q2

REPORT INFORMATION
  Report Type: Report from Study
  Country: IT (occurrence: IT)
  Receive Date: 20250516
  Receipt Date: 20250604
  Transmission Date: 20250717
  Serious: Yes (Death)
  Sender: ACCORD
  Company Number: None

PATIENT
  Age: 95 Year
  Sex: Female

DRUGS (4)
  1. RAMIPRIL [Suspect]
     Active Substance: RAMIPRIL
     Indication: Product used for unknown indication
     Dates: start: 2025
  2. BISOPROLOL [Concomitant]
     Active Substance: BISOPROLOL
     Dates: start: 2025
  3. LANSOPRAZOLE [Concomitant]
     Active Substance: LANSOPRAZOLE
     Dates: start: 2025
  4. MYCOSTATIN [Concomitant]
     Active Substance: NYSTATIN
     Dates: start: 2025

REACTIONS (2)
  - Dyspnoea [Fatal]
  - Hypotension [Fatal]

NARRATIVE: CASE EVENT DATE: 20250119
